FAERS Safety Report 8781620 (Version 1)
Quarter: 2012Q4

REPORT INFORMATION
  Report Type: 
  Country: SE (occurrence: SE)
  Receive Date: 20120913
  Receipt Date: 20120913
  Transmission Date: 20130627
  Serious: Yes (Hospitalization)
  Sender: FDA-Public Use
  Company Number: SE-PFIZER INC-2012222714

PATIENT
  Age: 61 Year
  Sex: Female
  Weight: 40.3 kg

DRUGS (27)
  1. GENOTROPIN [Suspect]
     Indication: GROWTH HORMONE DEFICIENCY
     Dosage: 1.2 mg, 7 injection/week
     Route: 058
     Dates: start: 19990817
  2. TRISEKVENS [Concomitant]
     Indication: BLOOD LUTEINISING HORMONE DECREASED
     Dosage: UNK
     Dates: start: 19730101
  3. TRISEKVENS [Concomitant]
     Indication: BLOOD FOLLICLE STIMULATING HORMONE DECREASED
  4. TRISEKVENS [Concomitant]
     Indication: HYPOGONADISM FEMALE
  5. PROGYNON [Concomitant]
     Indication: BLOOD LUTEINISING HORMONE DECREASED
     Dosage: UNK
     Dates: start: 19730115
  6. PROGYNON [Concomitant]
     Indication: BLOOD FOLLICLE STIMULATING HORMONE DECREASED
  7. PROGYNON [Concomitant]
     Indication: HYPOGONADISM FEMALE
  8. LITAREX [Concomitant]
     Indication: AFFECTIVE DISORDER
     Dosage: UNK
     Dates: start: 19940615
  9. HIPREX [Concomitant]
     Indication: URINARY TRACT INFECTION
     Dosage: UNK
     Dates: start: 19950115
  10. IMOVANE [Concomitant]
     Indication: SLEEP DISORDER
     Dosage: UNK
     Dates: start: 19960615
  11. ATARAX [Concomitant]
     Indication: NERVOUS SYSTEM DISORDER
     Dosage: UNK
     Dates: start: 19960615
  12. ATARAX [Concomitant]
     Indication: MUSCULOSKELETAL DISORDER
  13. KALITABS [Concomitant]
     Dosage: UNK
     Dates: start: 19970510
  14. CETIPRIN NOVUM [Concomitant]
     Indication: URINARY TRACT INFECTION
     Dosage: UNK
     Dates: start: 19970601
  15. STILNOCT [Concomitant]
     Indication: SLEEP DISORDER
     Dosage: UNK
     Dates: start: 19970601
  16. LEVOTHYROXINE [Concomitant]
     Indication: BLOOD THYROID STIMULATING HORMONE DECREASED
     Dosage: UNK
     Dates: start: 19600101
  17. LEVOTHYROXINE [Concomitant]
     Indication: PRIMARY HYPOTHYROIDISM
  18. DETRUSITOL [Concomitant]
     Indication: URINARY TRACT INFECTION
     Dosage: UNK
     Dates: start: 19980221
  19. DISIPAL [Concomitant]
     Indication: EXTRAPYRAMIDAL DISORDER
     Dosage: UNK
     Dates: start: 19980815
  20. PROPAVAN [Concomitant]
     Indication: SLEEP DISORDER
     Dosage: UNK
     Dates: start: 20020202
  21. ZYPREXA [Concomitant]
     Indication: PSYCHOTIC DISORDER
     Dosage: UNK
     Dates: start: 20030815
  22. LITHIONIT [Concomitant]
     Indication: PSYCHOTIC DISORDER
     Dosage: UNK
     Dates: start: 19980709
  23. LYRICA [Concomitant]
     Indication: NEURALGIA
     Dosage: UNK
     Dates: start: 20050115
  24. LERGIGAN [Concomitant]
     Indication: DEPRESSION
     Dosage: UNK
     Dates: start: 20050801
  25. OXASCAND [Concomitant]
     Indication: ANXIOLYTIC THERAPY
     Dosage: UNK
     Dates: start: 20050801
  26. REMERON [Concomitant]
     Indication: DEPRESSION
     Dosage: UNK
     Dates: start: 20050801
  27. SONATA [Concomitant]
     Indication: INSOMNIA
     Dosage: UNK
     Dates: start: 20050801

REACTIONS (1)
  - Dehydration [Unknown]
